FAERS Safety Report 4961772-0 (Version None)
Quarter: 2006Q2

REPORT INFORMATION
  Report Type: 
  Country: None (occurrence: None)
  Receive Date: 20060404
  Receipt Date: 20060210
  Transmission Date: 20061013
  Serious: Yes (Death, Hospitalization, Other)
  Sender: FDA-Public Use
  Company Number: PHBS2006JP02283

PATIENT
  Age: 82 Year
  Sex: Female

DRUGS (6)
  1. ZYLORIC [Suspect]
     Indication: HYPERURICAEMIA
     Dosage: 200 MG/DAY
     Route: 048
     Dates: start: 20051129, end: 20060205
  2. ADALAT [Concomitant]
     Indication: HYPERTENSION
     Dosage: 40 MG/DAY
     Route: 048
     Dates: end: 20060205
  3. CARBENIN [Concomitant]
     Indication: PNEUMONIA
     Dosage: 1 G/DAY
     Route: 041
  4. GRAN [Concomitant]
     Indication: NEUTROPENIA
     Dosage: 200 UG/D
     Route: 041
     Dates: start: 20060206, end: 20060210
  5. GLEEVEC [Suspect]
     Indication: CHRONIC MYELOID LEUKAEMIA
     Dosage: 400 MG/DAY
     Route: 048
     Dates: start: 20051129, end: 20060115
  6. GLEEVEC [Suspect]
     Dosage: 200 MG/DAY
     Route: 048
     Dates: start: 20050116, end: 20060205

REACTIONS (5)
  - LUNG INFILTRATION [None]
  - NASOPHARYNGITIS [None]
  - PANCYTOPENIA [None]
  - PNEUMONIA [None]
  - RESPIRATORY FAILURE [None]
